FAERS Safety Report 5413326-X (Version None)
Quarter: 2007Q3

REPORT INFORMATION
  Report Type: 
  Country: None (occurrence: None)
  Receive Date: 20070810
  Receipt Date: 20070801
  Transmission Date: 20080115
  Serious: Yes (Hospitalization)
  Sender: FDA-Public Use
  Company Number: 2007SP015637

PATIENT
  Age: 28 Year
  Sex: Male

DRUGS (1)
  1. CLARITIN [Suspect]
     Indication: DERMATITIS ATOPIC
     Dosage: 10 MG; ; PO
     Route: 048
     Dates: start: 20070728, end: 20070729

REACTIONS (4)
  - CONDITION AGGRAVATED [None]
  - DERMATITIS ATOPIC [None]
  - ERYTHEMA MULTIFORME [None]
  - STEVENS-JOHNSON SYNDROME [None]
